FAERS Safety Report 18175637 (Version 1)
Quarter: 2020Q3

REPORT INFORMATION
  Report Type: Spontaneous
  Country: AU (occurrence: AU)
  Receive Date: 20200820
  Receipt Date: 20200820
  Transmission Date: 20201103
  Serious: Yes (Other)
  Sender: FDA-Public Use
  Company Number: AU-SUNOVION-2020DSP009704

PATIENT
  Age: 48 Year
  Sex: Female

DRUGS (1)
  1. LATUDA [Suspect]
     Active Substance: LURASIDONE HYDROCHLORIDE
     Indication: PRODUCT USED FOR UNKNOWN INDICATION
     Dosage: UNK
     Route: 048
     Dates: start: 2016

REACTIONS (4)
  - Visual impairment [Unknown]
  - Miosis [Unknown]
  - Wrong product administered [Unknown]
  - Blindness transient [Unknown]

NARRATIVE: CASE EVENT DATE: 202008
